FAERS Safety Report 4788916-8 (Version None)
Quarter: 2005Q4

REPORT INFORMATION
  Report Type: 
  Country: None (occurrence: None)
  Receive Date: 20051004
  Receipt Date: 20050920
  Transmission Date: 20060501
  Serious: Yes (Other)
  Sender: FDA-Public Use
  Company Number: 8011508

PATIENT
  Sex: Female

DRUGS (4)
  1. KEPPRA [Suspect]
     Dosage: 750 MG/D
     Dates: start: 20050819, end: 20050823
  2. NEXIUM [Suspect]
     Indication: PROPHYLAXIS
     Dosage: 40 MG / D PO
     Route: 048
     Dates: start: 20050819, end: 20050823
  3. NEXIUM [Suspect]
     Indication: ULCER
     Dosage: 40 MG / D PO
     Route: 048
     Dates: start: 20050819, end: 20050823
  4. CORTICOIDS [Concomitant]

REACTIONS (3)
  - CONDITION AGGRAVATED [None]
  - LEUKOPENIA [None]
  - NEUTROPENIA [None]
